FAERS Safety Report 5468212-6 (Version None)
Quarter: 2007Q3

REPORT INFORMATION
  Report Type: 
  Country: None (occurrence: None)
  Receive Date: 20070926
  Receipt Date: 20070917
  Transmission Date: 20080115
  Serious: Yes (Other)
  Sender: FDA-Public Use
  Company Number: NZ-ASTRAZENECA-2007AC01805

PATIENT
  Age: 31 Year
  Sex: Female

DRUGS (7)
  1. SEROQUEL [Suspect]
     Indication: DEPRESSION
     Route: 048
  2. SEROQUEL [Suspect]
     Indication: PSYCHOTIC DISORDER
     Route: 048
  3. LAMOTRIGINE [Concomitant]
  4. BUDESONIDE [Concomitant]
     Route: 055
  5. TERBUTALINE SULFATE [Concomitant]
     Route: 055
  6. ZOPICLONE [Concomitant]
  7. CLONAZEPAM [Concomitant]

REACTIONS (1)
  - PSEUDOPHAEOCHROMOCYTOMA [None]
